FAERS Safety Report 4707253-0 (Version None)
Quarter: 2005Q3

REPORT INFORMATION
  Report Type: 
  Country: None (occurrence: None)
  Receive Date: 20050701
  Receipt Date: 20050425
  Transmission Date: 20060218
  Serious: No
  Sender: FDA-Public Use
  Company Number: 10993

PATIENT
  Age: 55 Year
  Sex: Female

DRUGS (4)
  1. METHOTREXATE [Suspect]
     Indication: RHEUMATOID ARTHRITIS
     Dosage: 20 MG WEEKLY, PO
     Route: 048
     Dates: start: 19960701, end: 20050411
  2. ETANERCEPT [Suspect]
     Dosage: 25 MG 2/WK, SC
     Route: 058
     Dates: start: 20010701, end: 20050411
  3. CO-PROXAMOL [Concomitant]
  4. INDOMETHACIN [Concomitant]

REACTIONS (4)
  - HEPATOMEGALY [None]
  - LIVER FUNCTION TEST ABNORMAL [None]
  - METASTASES TO LIVER [None]
  - METASTATIC BRONCHIAL CARCINOMA [None]
